FAERS Safety Report 25114609 (Version 4)
Quarter: 2025Q2

REPORT INFORMATION
  Report Type: Spontaneous
  Country: US (occurrence: US)
  Receive Date: 20250324
  Receipt Date: 20250421
  Transmission Date: 20250717
  Serious: Yes (Hospitalization)
  Sender: SANOFI AVENTIS
  Company Number: US-SA-2025SA084614

PATIENT
  Age: 20 Year
  Sex: Female

DRUGS (2)
  1. DUPIXENT [Suspect]
     Active Substance: DUPILUMAB
     Indication: Asthma
     Dosage: 300 MG, QOW
     Route: 058
  2. DUPIXENT [Suspect]
     Active Substance: DUPILUMAB
     Dosage: 300 MG, QOW
     Route: 058

REACTIONS (13)
  - Multiple allergies [Unknown]
  - Dyspnoea [Unknown]
  - Asthenia [Unknown]
  - Periorbital swelling [Unknown]
  - Loss of personal independence in daily activities [Unknown]
  - Illness [Unknown]
  - Influenza [Unknown]
  - Pain in extremity [Unknown]
  - Sinusitis [Unknown]
  - Injection site pain [Unknown]
  - Asthma [Unknown]
  - Arthralgia [Unknown]
  - Lack of injection site rotation [Unknown]

NARRATIVE: CASE EVENT DATE: 20250301
